FAERS Safety Report 6587640-9 (Version None)
Quarter: 2010Q1

REPORT INFORMATION
  Report Type: 
  Country: None (occurrence: None)
  Receive Date: 20100218
  Receipt Date: 20100212
  Transmission Date: 20100710
  Serious: Yes (Other)
  Sender: FDA-Public Use
  Company Number: JP-WYE-H12620609

PATIENT
  Age: 63 Year
  Sex: Female

DRUGS (1)
  1. ZOSYN [Suspect]
     Indication: PNEUMONIA ASPIRATION
     Route: 041
     Dates: start: 20090101, end: 20090101

REACTIONS (2)
  - CLOSTRIDIUM DIFFICILE COLITIS [None]
  - PSEUDOMEMBRANOUS COLITIS [None]
